FAERS Safety Report 9919299 (Version 3)
Quarter: 2014Q1

REPORT INFORMATION
  Report Type: Spontaneous
  Country: US (occurrence: US)
  Receive Date: 20140224
  Receipt Date: 20140328
  Transmission Date: 20141002
  Serious: Yes (Death)
  Sender: FDA-Public Use
  Company Number: US-SA-2014SA021728

PATIENT
  Age: 79 Year
  Sex: Female

DRUGS (5)
  1. PLAVIX [Suspect]
     Indication: CORONARY ARTERY DISEASE
     Route: 048
     Dates: start: 20121005, end: 20140216
  2. HYDROCHLOROTHIAZIDE [Concomitant]
     Dosage: 12.5: DOSE
  3. SYMBICORT [Concomitant]
     Dosage: DOSE: 80/4.5 MG
  4. FOLIC ACID [Concomitant]
  5. SIMVASTATIN [Concomitant]

REACTIONS (1)
  - Lung neoplasm malignant [Fatal]
